FAERS Safety Report 5407924-7 (Version None)
Quarter: 2007Q3

REPORT INFORMATION
  Report Type: 
  Country: None (occurrence: None)
  Receive Date: 20070713
  Receipt Date: 20070430
  Transmission Date: 20080115
  Serious: No
  Sender: FDA-Public Use
  Company Number: 2007SP001581

PATIENT
  Age: 64 Year
  Sex: Male
  Weight: 108.8633 kg

DRUGS (18)
  1. LUNESTA [Suspect]
     Indication: INSOMNIA
     Dosage: 2 MG; HS; ORAL;  4 MG; HS; ORAL
     Route: 048
     Dates: start: 20070401, end: 20070401
  2. LUNESTA [Suspect]
     Indication: INSOMNIA
     Dosage: 2 MG; HS; ORAL;  4 MG; HS; ORAL
     Route: 048
     Dates: start: 20070401, end: 20070401
  3. RESTORIL [Concomitant]
  4. TRAZODONE HCL [Concomitant]
  5. PAROXETINE [Concomitant]
  6. SITAGLIPTIN/METFORMIN [Concomitant]
  7. HCI [Concomitant]
  8. SIMVASTATIN [Concomitant]
  9. CARBIDOPA [Concomitant]
  10. BUPROPION [Concomitant]
  11. PLAVIX [Concomitant]
  12. GABAPENTIN [Concomitant]
  13. HYDROCHLOROTHIAZIDE [Concomitant]
  14. RANITIDINE [Concomitant]
  15. AMLODIPINE BESYLATE [Concomitant]
  16. LISINOPRIL [Concomitant]
  17. NIASPAN [Concomitant]
  18. TIOTROPIUM BROMIDE [Concomitant]

REACTIONS (1)
  - INSOMNIA [None]
